FAERS Safety Report 4356105-7 (Version None)
Quarter: 2004Q2

REPORT INFORMATION
  Report Type: 
  Country: None (occurrence: None)
  Receive Date: 20040511
  Receipt Date: 20040401
  Transmission Date: 20050107
  Serious: Yes (Life-Threatening, Hospitalization, Other)
  Sender: FDA-Public Use
  Company Number: AU-GLAXOSMITHKLINE-B0329071A

PATIENT
  Age: 20 Year
  Sex: Male
  Weight: 92 kg

DRUGS (6)
  1. ZYBAN [Suspect]
     Dosage: 150MG TWICE PER DAY
     Route: 048
     Dates: start: 20040317, end: 20040403
  2. QUETIAPINE [Concomitant]
     Route: 048
     Dates: start: 20040201
  3. ZOLOFT [Concomitant]
     Route: 048
     Dates: start: 20040207
  4. ACETAMINOPHEN [Concomitant]
     Dates: start: 20040406
  5. ENDEP [Concomitant]
     Dates: start: 20040406
  6. VIOXX [Concomitant]
     Dates: start: 20040406

REACTIONS (3)
  - DEPRESSION [None]
  - PSYCHOTIC DISORDER [None]
  - SUICIDE ATTEMPT [None]
